FAERS Safety Report 4469116-8 (Version None)
Quarter: 2004Q4

REPORT INFORMATION
  Report Type: 
  Country: None (occurrence: None)
  Receive Date: 20041001
  Receipt Date: 20040917
  Transmission Date: 20050328
  Serious: Yes (Death)
  Sender: FDA-Public Use
  Company Number: S04-USA-06268-01

PATIENT
  Age: 27 Year
  Sex: Male

DRUGS (5)
  1. LEXAPRO [Suspect]
     Indication: DEPRESSION
     Dates: end: 20040801
  2. LAMICTAL [Concomitant]
  3. LITHIUM [Concomitant]
  4. UNISOM SLEEP AID [Concomitant]
  5. NO-DOZ [Concomitant]

REACTIONS (2)
  - COMPLETED SUICIDE [None]
  - OVERDOSE [None]
